FAERS Safety Report 4341470-7 (Version None)
Quarter: 2004Q2

REPORT INFORMATION
  Report Type: 
  Country: None (occurrence: None)
  Receive Date: 20040415
  Receipt Date: 20040331
  Transmission Date: 20050107
  Serious: No
  Sender: FDA-Public Use
  Company Number: RS004353-GB

PATIENT
  Age: 56 Year
  Sex: Female
  Weight: 68 kg

DRUGS (2)
  1. RABEPRAZOLE SODIUM [Suspect]
     Indication: GASTROOESOPHAGEAL REFLUX DISEASE
     Dosage: 10 MG, ORAL
     Route: 048
     Dates: start: 20030415, end: 20031228
  2. ESOMEPRAZOLE (ESOMEPRAZOLE) [Suspect]
     Indication: GASTROOESOPHAGEAL REFLUX DISEASE
     Dosage: 20 MG, ORAL
     Route: 048
     Dates: start: 20001201, end: 20040312

REACTIONS (12)
  - DIARRHOEA [None]
  - EOSINOPHILIA [None]
  - HEPATIC ENCEPHALOPATHY [None]
  - HYPERHIDROSIS [None]
  - INSOMNIA [None]
  - LIVER FUNCTION TEST ABNORMAL [None]
  - NERVOUSNESS [None]
  - PRURITUS [None]
  - RHINITIS [None]
  - SINUSITIS [None]
  - SOMNOLENCE [None]
  - WEIGHT INCREASED [None]
